FAERS Safety Report 10419368 (Version 1)
Quarter: 2014Q3

REPORT INFORMATION
  Report Type: Spontaneous
  Country: US (occurrence: US)
  Receive Date: 20140829
  Receipt Date: 20140829
  Transmission Date: 20150326
  Serious: No
  Sender: FDA-Public Use
  Company Number: US-009507513-1408USA015670

PATIENT
  Sex: Male

DRUGS (1)
  1. MIRALAX [Suspect]
     Active Substance: POLYETHYLENE GLYCOL 3350
     Indication: CONSTIPATION
     Dosage: UNK, ONCE
     Route: 048
     Dates: start: 20140822

REACTIONS (2)
  - Faecal incontinence [Unknown]
  - Overdose [Unknown]

NARRATIVE: CASE EVENT DATE: 20140822
